FAERS Safety Report 14488492 (Version 17)
Quarter: 2019Q1

REPORT INFORMATION
  Report Type: Report from Study
  Country: CA (occurrence: CA)
  Receive Date: 20180205
  Receipt Date: 20190201
  Transmission Date: 20190417
  Serious: Yes (Other)
  Sender: FDA-Public Use
  Company Number: CA-PFIZER INC-2018046204

PATIENT
  Age: 51 Year
  Sex: Female

DRUGS (8)
  1. VITAMIN B12 [Concomitant]
     Active Substance: CYANOCOBALAMIN
     Dosage: UNK, MONTHLY
  2. ENTYVIO [Suspect]
     Active Substance: VEDOLIZUMAB
     Dosage: 300 MILLIGRAM
     Route: 042
     Dates: end: 20180921
  3. ENTYVIO [Suspect]
     Active Substance: VEDOLIZUMAB
     Dosage: 300 MILLIGRAM
     Route: 042
  4. ENTYVIO [Suspect]
     Active Substance: VEDOLIZUMAB
     Dosage: 300 MILLIGRAM
     Route: 042
  5. ENTYVIO [Suspect]
     Active Substance: VEDOLIZUMAB
     Dosage: 300 MILLIGRAM
     Route: 042
  6. PANTOLOC [Suspect]
     Active Substance: PANTOPRAZOLE SODIUM
     Dosage: UNK
     Route: 065
     Dates: start: 20130825, end: 20140825
  7. CALCIUM [Concomitant]
     Active Substance: CALCIUM
     Dosage: UNK
  8. ENTYVIO [Suspect]
     Active Substance: VEDOLIZUMAB
     Indication: CROHN^S DISEASE
     Dosage: 300 MILLIGRAM
     Route: 042
     Dates: start: 20170928

REACTIONS (19)
  - Mucous stools [Not Recovered/Not Resolved]
  - Anorectal discomfort [Unknown]
  - Haematochezia [Unknown]
  - Crohn^s disease [Not Recovered/Not Resolved]
  - Gastroenteritis viral [Unknown]
  - Fatigue [Unknown]
  - Bile duct obstruction [Unknown]
  - Dehydration [Unknown]
  - Influenza like illness [Unknown]
  - Feeling abnormal [Unknown]
  - Insomnia [Unknown]
  - Constipation [Not Recovered/Not Resolved]
  - Fistula [Not Recovered/Not Resolved]
  - Disease recurrence [Recovering/Resolving]
  - Diarrhoea [Not Recovered/Not Resolved]
  - Proctalgia [Unknown]
  - Blood pressure decreased [Unknown]
  - Dyspnoea [Recovered/Resolved]
  - Anal abscess [Unknown]

NARRATIVE: CASE EVENT DATE: 201709
